FAERS Safety Report 7861046-4 (Version None)
Quarter: 2011Q4

REPORT INFORMATION
  Report Type: 
  Country: None (occurrence: None)
  Receive Date: 20111027
  Receipt Date: 20110912
  Transmission Date: 20120403
  Serious: Yes (Life-Threatening, Hospitalization, Disabling)
  Sender: FDA-Public Use
  Company Number: FR-GLAXOSMITHKLINE-B0748636A

PATIENT
  Sex: Female
  Weight: 60 kg

DRUGS (3)
  1. DOXORUBICIN HYDROCHLORIDE [Concomitant]
     Route: 065
  2. HEPARIN [Concomitant]
     Indication: PRODUCT USED FOR UNKNOWN INDICATION
  3. ARIXTRA [Suspect]
     Indication: DEEP VEIN THROMBOSIS
     Dosage: 7.5MG PER DAY
     Route: 058
     Dates: start: 20110531, end: 20110703

REACTIONS (3)
  - COMA [None]
  - INCORRECT DRUG ADMINISTRATION DURATION [None]
  - INTRAVENTRICULAR HAEMORRHAGE [None]
